FAERS Safety Report 22877734 (Version 12)
Quarter: 2025Q1

REPORT INFORMATION
  Report Type: Report from Study
  Country: US (occurrence: US)
  Receive Date: 20230829
  Receipt Date: 20250218
  Transmission Date: 20250409
  Serious: Yes (Other)
  Sender: TAKEDA
  Company Number: US-TAKEDA-2023TUS042130

PATIENT
  Age: 74 Year
  Sex: Female
  Weight: 55 kg

DRUGS (51)
  1. TEDUGLUTIDE [Suspect]
     Active Substance: TEDUGLUTIDE
     Indication: Short-bowel syndrome
     Dosage: 1.46 MILLIGRAM, QD
  2. TEDUGLUTIDE [Suspect]
     Active Substance: TEDUGLUTIDE
     Dosage: UNK UNK, QD
  3. TEDUGLUTIDE [Suspect]
     Active Substance: TEDUGLUTIDE
     Dosage: 1.46 MILLIGRAM, QD
  4. TEDUGLUTIDE [Suspect]
     Active Substance: TEDUGLUTIDE
     Dosage: 1.46 MILLIGRAM, QD
  5. TEDUGLUTIDE [Suspect]
     Active Substance: TEDUGLUTIDE
     Dosage: 1.46 MILLIGRAM, QD
  6. TEDUGLUTIDE [Suspect]
     Active Substance: TEDUGLUTIDE
  7. TEDUGLUTIDE [Suspect]
     Active Substance: TEDUGLUTIDE
     Dosage: 1.46 MILLIGRAM, QD
  8. TEDUGLUTIDE [Suspect]
     Active Substance: TEDUGLUTIDE
     Dosage: 1.46 MILLIGRAM, QD
  9. TEDUGLUTIDE [Suspect]
     Active Substance: TEDUGLUTIDE
  10. TEDUGLUTIDE [Suspect]
     Active Substance: TEDUGLUTIDE
  11. PHAZYME [Concomitant]
     Active Substance: DIMETHICONE 410
  12. MAGNESIUM [Concomitant]
     Active Substance: MAGNESIUM
  13. CLARITIN [Concomitant]
     Active Substance: LORATADINE
  14. ATIVAN [Concomitant]
     Active Substance: LORAZEPAM
  15. ATROPINE\DIPHENOXYLATE [Concomitant]
     Active Substance: ATROPINE\DIPHENOXYLATE
  16. HYDROXYZINE PAMOATE [Concomitant]
     Active Substance: HYDROXYZINE PAMOATE
  17. ONDANSETRON HYDROCHLORIDE [Concomitant]
     Active Substance: ONDANSETRON HYDROCHLORIDE
  18. FLUOXETINE HYDROCHLORIDE [Concomitant]
     Active Substance: FLUOXETINE HYDROCHLORIDE
  19. METOPROLOL TARTRATE [Concomitant]
     Active Substance: METOPROLOL TARTRATE
  20. POTASSIUM CHLORIDE [Concomitant]
     Active Substance: POTASSIUM CHLORIDE
  21. POTASSIUM CHLORIDE [Concomitant]
     Active Substance: POTASSIUM CHLORIDE
  22. DIPHENHYDRAMINE HYDROCHLORIDE [Concomitant]
     Active Substance: DIPHENHYDRAMINE HYDROCHLORIDE
  23. OMEPRAZOLE [Concomitant]
     Active Substance: OMEPRAZOLE
  24. CODEINE SULFATE [Concomitant]
     Active Substance: CODEINE SULFATE
  25. CODEINE SULFATE [Concomitant]
     Active Substance: CODEINE SULFATE
  26. LISINOPRIL [Concomitant]
     Active Substance: LISINOPRIL
  27. LISINOPRIL [Concomitant]
     Active Substance: LISINOPRIL
  28. LEVOTHYROXINE SODIUM [Concomitant]
     Active Substance: LEVOTHYROXINE SODIUM
  29. PROMETHAZINE HYDROCHLORIDE [Concomitant]
     Active Substance: PROMETHAZINE HYDROCHLORIDE
  30. PROMETHAZINE HYDROCHLORIDE [Concomitant]
     Active Substance: PROMETHAZINE HYDROCHLORIDE
  31. HYDROCORTISONE [Concomitant]
     Active Substance: HYDROCORTISONE
  32. NITROGLYCERIN [Concomitant]
     Active Substance: NITROGLYCERIN
  33. CLONIDINE HYDROCHLORIDE [Concomitant]
     Active Substance: CLONIDINE HYDROCHLORIDE
  34. ASPIRIN [Concomitant]
     Active Substance: ASPIRIN
  35. LOPERAMIDE [Concomitant]
     Active Substance: LOPERAMIDE
  36. LIDOCAINE [Concomitant]
     Active Substance: LIDOCAINE
  37. ALPRAZOLAM [Concomitant]
     Active Substance: ALPRAZOLAM
  38. HYDROXYZINE HYDROCHLORIDE [Concomitant]
     Active Substance: HYDROXYZINE HYDROCHLORIDE
  39. NITROFURANTOIN MONOHYDRATE MACROCRYSTALS [Concomitant]
     Active Substance: NITROFURANTOIN\NITROFURANTOIN MONOHYDRATE
  40. MUPIROCIN [Concomitant]
     Active Substance: MUPIROCIN
  41. AMLODIPINE BESYLATE [Concomitant]
     Active Substance: AMLODIPINE BESYLATE
  42. DICYCLOMINE HYDROCHLORIDE [Concomitant]
     Active Substance: DICYCLOMINE HYDROCHLORIDE
  43. MORPHINE SULFATE [Concomitant]
     Active Substance: MORPHINE SULFATE
  44. TRINTELLIX [Concomitant]
     Active Substance: VORTIOXETINE HYDROBROMIDE
  45. HYDRALAZINE HCL [Concomitant]
     Active Substance: HYDRALAZINE HYDROCHLORIDE
  46. LIDOCAINE\PRILOCAINE [Concomitant]
     Active Substance: LIDOCAINE\PRILOCAINE
  47. TRAZODONE HCL [Concomitant]
     Active Substance: TRAZODONE HYDROCHLORIDE
  48. IBUPROFEN [Concomitant]
     Active Substance: IBUPROFEN
  49. ZYRTEC [Concomitant]
     Active Substance: CETIRIZINE HYDROCHLORIDE
  50. XIFAXAN [Concomitant]
     Active Substance: RIFAXIMIN
  51. ROSUVASTATIN CALCIUM [Concomitant]
     Active Substance: ROSUVASTATIN CALCIUM

REACTIONS (25)
  - Syncope [Unknown]
  - Hunger [Unknown]
  - Malabsorption [Unknown]
  - Fear of eating [Unknown]
  - Allergic sinusitis [Unknown]
  - Seasonal allergy [Unknown]
  - Hernia [Unknown]
  - Dyspepsia [Unknown]
  - Frequent bowel movements [Unknown]
  - Oxygen saturation decreased [Unknown]
  - Needle issue [Unknown]
  - Stoma site pain [Unknown]
  - Weight increased [Unknown]
  - Anal blister [Unknown]
  - Blood pressure systolic increased [Unknown]
  - Blood pressure systolic decreased [Unknown]
  - Blood pressure decreased [Unknown]
  - Blood pressure increased [Unknown]
  - Product container issue [Unknown]
  - Product dose omission issue [Unknown]
  - Insomnia [Unknown]
  - Decreased appetite [Unknown]
  - Flatulence [Not Recovered/Not Resolved]
  - Abdominal distension [Unknown]
  - Headache [Unknown]

NARRATIVE: CASE EVENT DATE: 20231128
